FAERS Safety Report 7293365-7 (Version None)
Quarter: 2011Q1

REPORT INFORMATION
  Report Type: 
  Country: None (occurrence: None)
  Receive Date: 20110215
  Receipt Date: 20110210
  Transmission Date: 20110831
  Serious: Yes (Other)
  Sender: FDA-Public Use
  Company Number: FR-PFIZER INC-2011025486

PATIENT
  Sex: Female
  Weight: 50 kg

DRUGS (1)
  1. RHINADVIL [Suspect]
     Dosage: 6 TO 8 DF PER DAY
     Dates: start: 20110124, end: 20110129

REACTIONS (8)
  - DEPRESSION [None]
  - PALPITATIONS [None]
  - DRUG WITHDRAWAL SYNDROME [None]
  - SUFFOCATION FEELING [None]
  - ANXIETY [None]
  - BLOOD PRESSURE DECREASED [None]
  - MENTAL DISORDER [None]
  - DYSPNOEA [None]
